FAERS Safety Report 21555011 (Version 2)
Quarter: 2022Q4

REPORT INFORMATION
  Report Type: Spontaneous
  Country: CA (occurrence: CA)
  Receive Date: 20221104
  Receipt Date: 20221209
  Transmission Date: 20230113
  Serious: Yes (Hospitalization, Other)
  Sender: FDA-Public Use
  Company Number: CA-PFIZER INC-202200574345

PATIENT
  Age: 25 Year
  Sex: Female
  Weight: 58 kg

DRUGS (2)
  1. ABRILADA [Suspect]
     Active Substance: ADALIMUMAB-AFZB
     Indication: Crohn^s disease
     Dosage: 40 MG, WEEKLY
     Route: 058
  2. ABRILADA [Suspect]
     Active Substance: ADALIMUMAB-AFZB
     Dosage: 40 MG, WEEKLY
     Route: 058
     Dates: start: 20220512

REACTIONS (18)
  - Pancreatitis [Unknown]
  - Intracranial pressure increased [Unknown]
  - Idiopathic intracranial hypertension [Unknown]
  - Illness [Unknown]
  - Influenza [Recovered/Resolved]
  - Contusion [Not Recovered/Not Resolved]
  - Injection site pain [Not Recovered/Not Resolved]
  - Condition aggravated [Not Recovered/Not Resolved]
  - Nausea [Not Recovered/Not Resolved]
  - Viral infection [Unknown]
  - Decreased appetite [Not Recovered/Not Resolved]
  - Defaecation urgency [Not Recovered/Not Resolved]
  - Headache [Unknown]
  - Migraine [Unknown]
  - Photophobia [Unknown]
  - Hyperacusis [Unknown]
  - Impaired work ability [Unknown]
  - Off label use [Unknown]

NARRATIVE: CASE EVENT DATE: 20220101
